FAERS Safety Report 7694060 (Version 5)
Quarter: 2013Q3

REPORT INFORMATION
  Report Type: Report from Study
  Country: IL (occurrence: IL)
  Receive Date: 20101206
  Receipt Date: 20130712
  Transmission Date: 20140515
  Serious: Yes (Hospitalization)
  Sender: FDA-Public Use
  Company Number: IL-BRISTOL-MYERS SQUIBB COMPANY-15415581

PATIENT
  Age: 51 Year
  Sex: Male

DRUGS (6)
  1. SAXAGLIPTIN [Suspect]
     Indication: TYPE 2 DIABETES MELLITUS
     Dosage: LAST DOSE ON 24NOV10.
     Dates: start: 20101123, end: 20101125
  2. METFORMIN HCL [Suspect]
     Dosage: CONTINUING
  3. GLIMEPIRIDE [Suspect]
     Dosage: CONTINUING
  4. LANTUS [Suspect]
  5. ASPIRIN [Concomitant]
     Dosage: 1 DF= LESS THAN 100MG.
     Dates: start: 20101123
  6. ANGIOTENSIN CONVERTING ENZYME [Concomitant]
     Dates: start: 20101123

REACTIONS (1)
  - Pancreatitis acute [Recovered/Resolved]
